FAERS Safety Report 9998260 (Version 1)
Quarter: 2014Q1

REPORT INFORMATION
  Report Type: Spontaneous
  Country: BE (occurrence: BE)
  Receive Date: 20140311
  Receipt Date: 20140311
  Transmission Date: 20141002
  Serious: Yes (Hospitalization)
  Sender: FDA-Public Use
  Company Number: BE-ROCHE-1362530

PATIENT
  Age: 67 Year
  Sex: Male

DRUGS (16)
  1. AVASTIN [Suspect]
     Indication: COLORECTAL CANCER
     Route: 065
     Dates: start: 201002
  2. FOLINIC ACID [Concomitant]
     Route: 065
     Dates: start: 201002, end: 201012
  3. FOLINIC ACID [Concomitant]
     Route: 065
     Dates: start: 201106
  4. 5-FU [Concomitant]
     Route: 065
     Dates: start: 201002, end: 201012
  5. 5-FU [Concomitant]
     Route: 065
     Dates: start: 201106
  6. IRINOTECAN [Concomitant]
     Route: 065
     Dates: start: 201002, end: 201012
  7. IRINOTECAN [Concomitant]
     Route: 065
     Dates: start: 201106
  8. ALDACTONE (BELGIUM) [Concomitant]
  9. APROVEL [Concomitant]
     Indication: HYPERTENSION
  10. ASAFLOW [Concomitant]
  11. BURINEX [Concomitant]
  12. EMCONCOR [Concomitant]
  13. SIMVASTATINE [Concomitant]
  14. VASEXTEN [Concomitant]
  15. INSULINE [Concomitant]
     Indication: DIABETES MELLITUS
  16. NOVOMIX [Concomitant]
     Indication: DIABETES MELLITUS

REACTIONS (3)
  - Decreased appetite [Unknown]
  - Gastrooesophageal reflux disease [Unknown]
  - Cardiac failure [Unknown]
